FAERS Safety Report 21405547 (Version 1)
Quarter: 2022Q4

REPORT INFORMATION
  Report Type: Report from Study
  Country: US (occurrence: US)
  Receive Date: 20221004
  Receipt Date: 20221004
  Transmission Date: 20230112
  Serious: No
  Sender: FDA-Public Use
  Company Number: US-ABBVIE-4128097

PATIENT
  Sex: Female

DRUGS (5)
  1. HUMIRA [Suspect]
     Active Substance: ADALIMUMAB
     Indication: Psoriasis
     Dosage: CITRATE FREE
     Route: 058
  2. HUMIRA [Suspect]
     Active Substance: ADALIMUMAB
     Dosage: CITRATE FREE
     Route: 058
  3. MODERNA COVID-19 VACCINE [Concomitant]
     Active Substance: ELASOMERAN
     Indication: COVID-19 immunisation
     Dosage: DOSE 1- FREQUENCY ONE AT ONCE
     Route: 030
     Dates: start: 20210112, end: 20210112
  4. MODERNA COVID-19 VACCINE [Concomitant]
     Active Substance: ELASOMERAN
     Indication: COVID-19 immunisation
     Dosage: DOSE 2 -FREQUENCY ONE AT ONCE
     Route: 030
     Dates: start: 20210208, end: 20210208
  5. MODERNA COVID-19 VACCINE [Concomitant]
     Active Substance: ELASOMERAN
     Indication: COVID-19 immunisation
     Dosage: DOSE 3 -FREQUENCY ONE AT ONCE- BOOSTER DOSE
     Route: 030
     Dates: start: 20220202, end: 20220202

REACTIONS (3)
  - Diabetes mellitus [Recovering/Resolving]
  - Arthritis [Recovering/Resolving]
  - Visual impairment [Recovering/Resolving]
